FAERS Safety Report 6313198-5 (Version None)
Quarter: 2009Q3

REPORT INFORMATION
  Report Type: 
  Country: None (occurrence: None)
  Receive Date: 20090818
  Receipt Date: 20090812
  Transmission Date: 20100115
  Serious: Yes (Life-Threatening, Other)
  Sender: FDA-Public Use
  Company Number: US-CELGENEUS-163-21880-09071601

PATIENT
  Sex: Female

DRUGS (6)
  1. REVLIMID [Suspect]
     Route: 048
     Dates: start: 20090709, end: 20090701
  2. REVLIMID [Suspect]
     Route: 048
     Dates: start: 20090717, end: 20090811
  3. AVAPRO [Concomitant]
     Route: 065
  4. LISINOPRIL [Concomitant]
     Dosage: 20-25MG
     Route: 065
  5. NORVASC [Concomitant]
     Route: 065
  6. LUNESTA [Concomitant]
     Route: 065

REACTIONS (1)
  - PANCYTOPENIA [None]
